FAERS Safety Report 5745258-1 (Version None)
Quarter: 2008Q2

REPORT INFORMATION
  Report Type: 
  Country: None (occurrence: None)
  Receive Date: 20080521
  Receipt Date: 20080515
  Transmission Date: 20081010
  Serious: Yes (Other)
  Sender: FDA-Public Use
  Company Number: GB-TEVA-171635ISR

PATIENT
  Age: 5 Year
  Sex: Male

DRUGS (2)
  1. LORATADINE [Suspect]
     Indication: VARICELLA
  2. ACETAMINOPHEN [Suspect]
     Indication: VARICELLA

REACTIONS (1)
  - ACUTE GENERALISED EXANTHEMATOUS PUSTULOSIS [None]
